FAERS Safety Report 6930296-3 (Version None)
Quarter: 2010Q3

REPORT INFORMATION
  Report Type: 
  Country: None (occurrence: None)
  Receive Date: 20100813
  Receipt Date: 20100811
  Transmission Date: 20110219
  Serious: Yes (Hospitalization)
  Sender: FDA-Public Use
  Company Number: SP03049

PATIENT
  Age: 69 Year
  Sex: Male

DRUGS (1)
  1. VISICOL [Suspect]
     Indication: BOWEL PREPARATION
     Dosage: (50 GM), ORAL
     Route: 048
     Dates: start: 20100714, end: 20100714

REACTIONS (4)
  - FALL [None]
  - HYPERPHOSPHATAEMIA [None]
  - LOSS OF CONSCIOUSNESS [None]
  - SPINAL COMPRESSION FRACTURE [None]
